FAERS Safety Report 15049199 (Version 1)
Quarter: 2018Q2

REPORT INFORMATION
  Report Type: Spontaneous
  Country: JP (occurrence: JP)
  Receive Date: 20180622
  Receipt Date: 20180622
  Transmission Date: 20180711
  Serious: Yes (Hospitalization, Other)
  Sender: FDA-Public Use
  Company Number: JP-BION-007269

PATIENT
  Age: 86 Year
  Sex: Female

DRUGS (7)
  1. ACETYLSALICYLIC ACID [Concomitant]
     Active Substance: ASPIRIN
  2. AMLODIPINE [Concomitant]
     Active Substance: AMLODIPINE BESYLATE
  3. AMANTADINE HYDROCHLORIDE. [Suspect]
     Active Substance: AMANTADINE HYDROCHLORIDE
     Indication: TREMOR
     Route: 048
  4. BAZEDOXIFENE/BAZEDOXIFENE ACETATE [Concomitant]
  5. ETIZOLAM [Concomitant]
     Active Substance: ETIZOLAM
  6. ELDECALCITOL [Concomitant]
     Active Substance: ELDECALCITOL
  7. BISOPROLOL [Concomitant]
     Active Substance: BISOPROLOL

REACTIONS (2)
  - Subdural haematoma [Recovered/Resolved]
  - Chorea [Recovered/Resolved]
